FAERS Safety Report 13331172 (Version 1)
Quarter: 2017Q1

REPORT INFORMATION
  Report Type: Other
  Country: US (occurrence: US)
  Receive Date: 20170313
  Receipt Date: 20170313
  Transmission Date: 20170428
  Serious: No
  Sender: FDA-Public Use
  Company Number: US-COL_23140_2016

PATIENT
  Sex: Female

DRUGS (3)
  1. HEART MEDICATIONS [Concomitant]
     Active Substance: UNSPECIFIED INGREDIENT
     Indication: PRODUCT USED FOR UNKNOWN INDICATION
     Dosage: NI/
  2. BLOOD PALETTES MEDICATIONS [Concomitant]
     Indication: PRODUCT USED FOR UNKNOWN INDICATION
     Dosage: NI/
  3. PERIOGARD [Suspect]
     Active Substance: CHLORHEXIDINE GLUCONATE
     Indication: PRODUCT USED FOR UNKNOWN INDICATION
     Dosage: HALF OF THE CAP/OD/
     Route: 048
     Dates: start: 20160427, end: 20160504

REACTIONS (2)
  - Oral discomfort [Recovering/Resolving]
  - Tooth discolouration [Recovering/Resolving]

NARRATIVE: CASE EVENT DATE: 2016
